FAERS Safety Report 18070948 (Version 1)
Quarter: 2020Q3

REPORT INFORMATION
  Report Type: Spontaneous
  Country: JP (occurrence: JP)
  Receive Date: 20200727
  Receipt Date: 20200727
  Transmission Date: 20201103
  Serious: Yes (Other)
  Sender: FDA-Public Use
  Company Number: JP-ASTELLAS-2019JP028017

PATIENT
  Age: 79 Year
  Sex: Male

DRUGS (2)
  1. XTANDI [Suspect]
     Active Substance: ENZALUTAMIDE
     Indication: HORMONE-REFRACTORY PROSTATE CANCER
     Route: 048
     Dates: start: 20181026
  2. XTANDI [Suspect]
     Active Substance: ENZALUTAMIDE
     Dosage: UNK,UNK, UNKNOWN FREQ.
     Route: 048
     Dates: start: 202002

REACTIONS (1)
  - Prostate cancer [Recovered/Resolved]
